FAERS Safety Report 7680582-7 (Version None)
Quarter: 2011Q3

REPORT INFORMATION
  Report Type: 
  Country: None (occurrence: None)
  Receive Date: 20110812
  Receipt Date: 20110808
  Transmission Date: 20111222
  Serious: Yes (Other)
  Sender: FDA-Public Use
  Company Number: US-PFIZER INC-2011157262

PATIENT
  Age: 50 Year
  Sex: Male

DRUGS (4)
  1. CELEBREX [Suspect]
     Indication: SPINAL COLUMN STENOSIS
     Dosage: UNK
  2. CELEBREX [Suspect]
     Indication: JOINT STABILISATION
  3. ARTHROTEC [Suspect]
     Indication: SPINAL COLUMN STENOSIS
     Dosage: UNK
  4. ARTHROTEC [Suspect]
     Indication: JOINT STABILISATION

REACTIONS (5)
  - PAIN [None]
  - ARTHROPATHY [None]
  - SPINAL DISORDER [None]
  - MUSCULOSKELETAL STIFFNESS [None]
  - OEDEMA PERIPHERAL [None]
